FAERS Safety Report 7246343-8 (Version None)
Quarter: 2011Q1

REPORT INFORMATION
  Report Type: 
  Country: None (occurrence: None)
  Receive Date: 20110126
  Receipt Date: 20110121
  Transmission Date: 20110831
  Serious: Yes (Death, Hospitalization)
  Sender: FDA-Public Use
  Company Number: US-US-EMD SERONO, INC.-7037516

PATIENT
  Sex: Female

DRUGS (2)
  1. COUMADIN [Concomitant]
     Indication: THROMBOSIS
  2. REBIF [Suspect]
     Indication: MULTIPLE SCLEROSIS
     Route: 058
     Dates: start: 20030101

REACTIONS (2)
  - MULTIPLE SCLEROSIS [None]
  - CONTUSION [None]
